FAERS Safety Report 14920473 (Version 7)
Quarter: 2018Q3

REPORT INFORMATION
  Report Type: Report from Study
  Country: US (occurrence: US)
  Receive Date: 20180521
  Receipt Date: 20180904
  Transmission Date: 20181010
  Serious: Yes (Other)
  Sender: FDA-Public Use
  Company Number: US-JAZZ-2018-US-006245

PATIENT
  Age: 37 Year
  Sex: Female

DRUGS (11)
  1. BREO ELLIPTA [Suspect]
     Active Substance: FLUTICASONE FUROATE\VILANTEROL TRIFENATATE
     Indication: PRODUCT USED FOR UNKNOWN INDICATION
     Dosage: UNK
     Dates: start: 20180516
  2. XYREM [Suspect]
     Active Substance: SODIUM OXYBATE
     Dosage: 3 G, BID
     Route: 048
     Dates: start: 201804, end: 201804
  3. MUCINEX [Suspect]
     Active Substance: GUAIFENESIN
     Indication: PRODUCT USED FOR UNKNOWN INDICATION
  4. XYREM [Suspect]
     Active Substance: SODIUM OXYBATE
     Indication: NARCOLEPSY
     Dosage: 2.25 G, BID
     Route: 048
     Dates: start: 20180414
  5. XYREM [Suspect]
     Active Substance: SODIUM OXYBATE
     Dosage: 3.75 G, BID
     Route: 048
     Dates: start: 20180429
  6. XYREM [Suspect]
     Active Substance: SODIUM OXYBATE
     Dosage: 3.75 G, BID
     Route: 048
     Dates: start: 201804, end: 201804
  7. XYREM [Suspect]
     Active Substance: SODIUM OXYBATE
     Dosage: 4.5 G, BID
     Route: 048
     Dates: start: 20180504, end: 20180507
  8. SYMBICORT [Suspect]
     Active Substance: BUDESONIDE\FORMOTEROL FUMARATE DIHYDRATE
     Indication: PRODUCT USED FOR UNKNOWN INDICATION
  9. XYREM [Suspect]
     Active Substance: SODIUM OXYBATE
     Dosage: UNKNOWN DOSE
     Dates: start: 20180601, end: 20180603
  10. XYREM [Suspect]
     Active Substance: SODIUM OXYBATE
     Dosage: UNK
  11. MODAFINIL. [Suspect]
     Active Substance: MODAFINIL
     Indication: PRODUCT USED FOR UNKNOWN INDICATION

REACTIONS (36)
  - Eye disorder [Not Recovered/Not Resolved]
  - Drug ineffective [Unknown]
  - Mood altered [Not Recovered/Not Resolved]
  - Feeling abnormal [Unknown]
  - Condition aggravated [Unknown]
  - Ageusia [Not Recovered/Not Resolved]
  - Insomnia [Recovering/Resolving]
  - Weight increased [Unknown]
  - Headache [Not Recovered/Not Resolved]
  - Barrett^s oesophagus [Unknown]
  - Abdominal distension [Not Recovered/Not Resolved]
  - Bruxism [Unknown]
  - Dyspepsia [Unknown]
  - Heart rate increased [Unknown]
  - Cough [Unknown]
  - Arthralgia [Not Recovered/Not Resolved]
  - Hot flush [Unknown]
  - Allergy to animal [Not Recovered/Not Resolved]
  - Fluid retention [Not Recovered/Not Resolved]
  - Memory impairment [Unknown]
  - Nasal congestion [Recovered/Resolved]
  - Oropharyngeal pain [Not Recovered/Not Resolved]
  - Nasopharyngitis [Unknown]
  - Swelling [Not Recovered/Not Resolved]
  - Thirst [Not Recovered/Not Resolved]
  - Sedation [Recovered/Resolved]
  - Somnolence [Unknown]
  - Respiratory tract infection [Recovering/Resolving]
  - Ear discomfort [Not Recovered/Not Resolved]
  - Peripheral swelling [Not Recovered/Not Resolved]
  - Fatigue [Unknown]
  - Hypersensitivity [Not Recovered/Not Resolved]
  - Nausea [Unknown]
  - Ear pain [Not Recovered/Not Resolved]
  - Feeling jittery [Unknown]
  - Bronchitis [Unknown]

NARRATIVE: CASE EVENT DATE: 201804
